FAERS Safety Report 12430418 (Version 1)
Quarter: 2016Q2

REPORT INFORMATION
  Report Type: Spontaneous
  Country: US (occurrence: US)
  Receive Date: 20160602
  Receipt Date: 20160602
  Transmission Date: 20160815
  Serious: Yes (Other)
  Sender: FDA-Public Use
  Company Number: US-TEVA-662315USA

PATIENT
  Sex: Male

DRUGS (4)
  1. BISOPROLOL [Concomitant]
     Active Substance: BISOPROLOL
     Dosage: UNKNOWN FORM STRENGTH
     Route: 065
  2. METFORMIN [Concomitant]
     Active Substance: METFORMIN HYDROCHLORIDE
     Dosage: UNKNOWN FORM STRENGTH
     Route: 065
  3. COPAXONE [Suspect]
     Active Substance: GLATIRAMER ACETATE
     Indication: MULTIPLE SCLEROSIS
     Route: 058
     Dates: start: 201404
  4. GABAPENTIN. [Concomitant]
     Active Substance: GABAPENTIN
     Dosage: UNKNOWN FORM STRENGTH
     Route: 065

REACTIONS (6)
  - Stress [Unknown]
  - Multiple sclerosis relapse [Unknown]
  - Dizziness [Unknown]
  - Nausea [Unknown]
  - Insomnia [Unknown]
  - Sleep apnoea syndrome [Unknown]

NARRATIVE: CASE EVENT DATE: 2016
